FAERS Safety Report 9502556 (Version 1)
Quarter: 2013Q3

REPORT INFORMATION
  Report Type: Spontaneous
  Country: US (occurrence: US)
  Receive Date: 20130906
  Receipt Date: 20130906
  Transmission Date: 20140515
  Serious: Yes (Hospitalization)
  Sender: FDA-Public Use
  Company Number: US-BAYER-2013-107250

PATIENT
  Age: 25 Year
  Sex: Female

DRUGS (2)
  1. YAZ [Suspect]
  2. GIANVI [Suspect]

REACTIONS (2)
  - Intracranial venous sinus thrombosis [Recovered/Resolved]
  - Cerebrovascular accident [Recovered/Resolved]
